FAERS Safety Report 19047494 (Version 1)
Quarter: 2021Q1

REPORT INFORMATION
  Report Type: Report from Study
  Country: US (occurrence: US)
  Receive Date: 20210323
  Receipt Date: 20210323
  Transmission Date: 20210420
  Serious: Yes (Hospitalization)
  Sender: FDA-Public Use
  Company Number: US-JNJFOC-20210326654

PATIENT
  Age: 1 Year
  Sex: Female

DRUGS (6)
  1. BOSENTAN. [Suspect]
     Active Substance: BOSENTAN
     Indication: PULMONARY ARTERIAL HYPERTENSION
     Route: 048
     Dates: start: 20200804
  2. SILACE [Concomitant]
     Active Substance: DOCUSATE SODIUM
  3. FUROSEMIDE. [Concomitant]
     Active Substance: FUROSEMIDE
  4. ASPRIN [Concomitant]
     Active Substance: ASPIRIN
     Route: 048
  5. SILDENAFIL. [Concomitant]
     Active Substance: SILDENAFIL
  6. FAMOTIDINE. [Concomitant]
     Active Substance: FAMOTIDINE

REACTIONS (4)
  - Product use issue [Unknown]
  - Gastrointestinal tube insertion [Not Recovered/Not Resolved]
  - Product dose omission issue [Not Recovered/Not Resolved]
  - Off label use [Unknown]

NARRATIVE: CASE EVENT DATE: 202103
